FAERS Safety Report 11108152 (Version 3)
Quarter: 2015Q2

REPORT INFORMATION
  Report Type: Spontaneous
  Country: ES (occurrence: ES)
  Receive Date: 20150512
  Receipt Date: 20150520
  Transmission Date: 20150821
  Serious: Yes (Hospitalization, Other)
  Sender: FDA-Public Use
  Company Number: ES-EMD SERONO-8024590

PATIENT
  Age: 14 Year
  Sex: Male

DRUGS (1)
  1. SAIZEN [Suspect]
     Active Substance: SOMATROPIN
     Indication: GROWTH HORMONE DEFICIENCY
     Route: 058
     Dates: start: 2008, end: 20150428

REACTIONS (9)
  - Hypoaesthesia [Recovering/Resolving]
  - Asthenia [Recovering/Resolving]
  - Spinal cord injury cervical [Recovering/Resolving]
  - Intermittent claudication [Recovering/Resolving]
  - Cerebellar syndrome [Recovering/Resolving]
  - Paraesthesia [Recovering/Resolving]
  - Demyelination [Recovering/Resolving]
  - Multiple sclerosis [Recovering/Resolving]
  - Motor dysfunction [Recovering/Resolving]

NARRATIVE: CASE EVENT DATE: 20150428
